FAERS Safety Report 12604850 (Version 1)
Quarter: 2016Q3

REPORT INFORMATION
  Report Type: Spontaneous
  Country: US (occurrence: US)
  Receive Date: 20160728
  Receipt Date: 20160728
  Transmission Date: 20161109
  Serious: No
  Sender: FDA-Public Use
  Company Number: US-AKRIMAX-TIR-2016-0752

PATIENT
  Age: 31 Year
  Sex: Female
  Weight: 68.1 kg

DRUGS (2)
  1. TIROSINT [Suspect]
     Active Substance: LEVOTHYROXINE SODIUM
     Indication: AUTOIMMUNE THYROIDITIS
     Dosage: 1/4 OF CAPSULE AT 09:20 AND ANOTHER 1/4 OF CAPSULE AT 12:20
     Route: 048
     Dates: start: 20160620, end: 20160620
  2. GUMMY VITAMINS [Concomitant]
     Indication: PRODUCT USED FOR UNKNOWN INDICATION

REACTIONS (3)
  - Nausea [Unknown]
  - Incorrect drug dosage form administered [Unknown]
  - Tachycardia [Unknown]

NARRATIVE: CASE EVENT DATE: 20160620
